FAERS Safety Report 9890715 (Version 1)
Quarter: 2014Q1

REPORT INFORMATION
  Report Type: Spontaneous
  Country: US (occurrence: None)
  Receive Date: 20140207
  Receipt Date: 20140207
  Transmission Date: 20141002
  Serious: Yes (Death)
  Sender: FDA-Public Use
  Company Number: SYM-2014-16233

PATIENT
  Age: 21 Year
  Sex: Male

DRUGS (4)
  1. DIAZEPAM (DIAZEPAM) (DIAZEPAM) [Suspect]
     Indication: PRODUCT USED FOR UNKNOWN INDICATION
  2. HEROIN (DIAMORPHINE) (DIAMORPHINE) [Suspect]
     Indication: PRODUCT USED FOR UNKNOWN INDICATION
  3. METHYLENEDIOXYMETHAMPHETAMINE [Suspect]
     Indication: PRODUCT USED FOR UNKNOWN INDICATION
  4. CODEINE (CODEINE) (CODEINE) [Suspect]
     Indication: PRODUCT USED FOR UNKNOWN INDICATION

REACTIONS (2)
  - Poisoning [None]
  - Drug abuse [None]
